FAERS Safety Report 10927205 (Version 5)
Quarter: 2016Q1

REPORT INFORMATION
  Report Type: Spontaneous
  Country: US (occurrence: None)
  Receive Date: 20150316
  Receipt Date: 20160304
  Transmission Date: 20160525
  Serious: Yes (Other)
  Sender: FDA-Public Use
  Company Number: ADR-2015-00499

PATIENT
  Age: 50 Year
  Sex: Male

DRUGS (2)
  1. BACLOFEN INTRATHECAL [Suspect]
     Active Substance: BACLOFEN
     Indication: BACK PAIN
  2. DILAUDID [Suspect]
     Active Substance: HYDROMORPHONE HYDROCHLORIDE

REACTIONS (25)
  - Overdose [None]
  - Dizziness [None]
  - Hypertension [None]
  - Pain in extremity [None]
  - Burning sensation [None]
  - Somnolence [None]
  - Thyroid mass [None]
  - Pain [None]
  - Medical device site mass [None]
  - Therapeutic response decreased [None]
  - Back pain [None]
  - Neurological symptom [None]
  - Muscle spasms [None]
  - Spinal pain [None]
  - Emotional distress [None]
  - Spinal cord injury cervical [None]
  - Tachycardia [None]
  - Muscular weakness [None]
  - Neck pain [None]
  - No therapeutic response [None]
  - Sleep disorder [None]
  - Arachnoiditis [None]
  - Performance status decreased [None]
  - Spinal cord compression [None]
  - Hypoaesthesia [None]
